FAERS Safety Report 6552072-6 (Version None)
Quarter: 2010Q1

REPORT INFORMATION
  Report Type: 
  Country: None (occurrence: None)
  Receive Date: 20100120
  Receipt Date: 20100108
  Transmission Date: 20100710
  Serious: Yes (Death, Life-Threatening, Hospitalization)
  Sender: FDA-Public Use
  Company Number: FABR-10806

PATIENT
  Age: 41 Year
  Sex: Male
  Weight: 50 kg

DRUGS (9)
  1. FABRAZYME [Suspect]
     Indication: FABRY'S DISEASE
     Dosage: 50 MG, Q2W, INTRAVENOUS
     Route: 042
     Dates: start: 20040716, end: 20040924
  2. CELESTAMINE (CHLORPHENARAMINE MALEATE, BETAMETHASONE) [Concomitant]
  3. DICLOFENAC SODIUM [Concomitant]
  4. LACTOMIN (LACTOBACILLUS SPOROGENES) [Concomitant]
  5. SEVELAMER HYDROCHLORIDE (SEVELAMER HYDROCHLORIDE) [Concomitant]
  6. CARBAMAZEPINE [Concomitant]
  7. PRECIPITATED CALCIUM CARONATE [Concomitant]
  8. FAMOTIDINE [Concomitant]
  9. AK-SOLITA-DP [Concomitant]

REACTIONS (15)
  - ALANINE AMINOTRANSFERASE INCREASED [None]
  - ASPARTATE AMINOTRANSFERASE INCREASED [None]
  - BLOOD LACTATE DEHYDROGENASE INCREASED [None]
  - CACHEXIA [None]
  - CARDIO-RESPIRATORY ARREST [None]
  - CEREBRAL INFARCTION [None]
  - CEREBRAL ISCHAEMIA [None]
  - COMA [None]
  - DECREASED APPETITE [None]
  - HAEMATOCRIT DECREASED [None]
  - HAEMODIALYSIS [None]
  - HAEMOGLOBIN DECREASED [None]
  - HYPOGLYCAEMIA [None]
  - PLATELET COUNT DECREASED [None]
  - PULMONARY OEDEMA [None]
